FAERS Safety Report 8119188-4 (Version None)
Quarter: 2012Q1

REPORT INFORMATION
  Report Type: 
  Country: None (occurrence: None)
  Receive Date: 20120207
  Receipt Date: 20120123
  Transmission Date: 20120608
  Serious: Yes (Hospitalization)
  Sender: FDA-Public Use
  Company Number: LK-WATSON-2012-01566

PATIENT
  Age: 18 Year
  Sex: Female

DRUGS (2)
  1. METFORMIN HCL [Suspect]
     Indication: PRODUCT USED FOR UNKNOWN INDICATION
     Dosage: 17.5 G, SINGLE
     Route: 048
  2. KEROSENE [Suspect]

REACTIONS (7)
  - RENAL FAILURE ACUTE [None]
  - ABDOMINAL PAIN UPPER [None]
  - VOMITING [None]
  - LACTIC ACIDOSIS [None]
  - HYPOGLYCAEMIC SEIZURE [None]
  - DYSPNOEA [None]
  - INTENTIONAL OVERDOSE [None]
